FAERS Safety Report 4656762-1 (Version None)
Quarter: 2005Q2

REPORT INFORMATION
  Report Type: 
  Country: None (occurrence: None)
  Receive Date: 20050408
  Receipt Date: 20050216
  Transmission Date: 20051028
  Serious: No
  Sender: FDA-Public Use
  Company Number: 230601K05USA

PATIENT
  Age: 50 Year
  Sex: Female

DRUGS (7)
  1. REBIF (INTERFERON BETA) [Suspect]
     Indication: MULTIPLE SCLEROSIS
     Dosage: 22 MCG, 3 IN 1 WEEKS, SUBCUTANEOUS
     Route: 058
     Dates: start: 20050104
  2. NEURONTIN [Concomitant]
  3. CARBITROL (CARBAMAZEPINE) [Concomitant]
  4. KLONOPIN [Concomitant]
  5. IRON (IRON) [Concomitant]
  6. MULTIVITAMIN [Concomitant]
  7. ANTIDEPRESSANT (ALL OTHER THERAPEUTIC PRODUCTS) [Concomitant]

REACTIONS (5)
  - ASTHENIA [None]
  - HYPERTONIA [None]
  - MULTIPLE SCLEROSIS [None]
  - MUSCLE SPASMS [None]
  - PAIN IN EXTREMITY [None]
